FAERS Safety Report 14248130 (Version 2)
Quarter: 2018Q1

REPORT INFORMATION
  Report Type: Spontaneous
  Country: JP (occurrence: JP)
  Receive Date: 20171204
  Receipt Date: 20180124
  Transmission Date: 20180508
  Serious: Yes (Other)
  Sender: FDA-Public Use
  Company Number: JP-ELI_LILLY_AND_COMPANY-JP201711012624

PATIENT
  Age: 77 Year
  Sex: Male

DRUGS (4)
  1. CISPLATIN. [Suspect]
     Active Substance: CISPLATIN
     Indication: SMALL INTESTINE CARCINOMA RECURRENT
     Dosage: UNK
     Route: 065
     Dates: start: 201602
  2. ABACAVIR AND LAMIVUDINE [Concomitant]
     Active Substance: ABACAVIR SULFATE\LAMIVUDINE
     Indication: ACQUIRED IMMUNODEFICIENCY SYNDROME
     Route: 048
  3. GEMZAR [Suspect]
     Active Substance: GEMCITABINE HYDROCHLORIDE
     Indication: SMALL INTESTINE CARCINOMA RECURRENT
     Dosage: UNK
     Route: 041
     Dates: start: 201602
  4. DOLUTEGRAVIR SODIUM [Concomitant]
     Active Substance: DOLUTEGRAVIR SODIUM
     Indication: ACQUIRED IMMUNODEFICIENCY SYNDROME
     Route: 048

REACTIONS (3)
  - Blood HIV RNA increased [Unknown]
  - Nausea [Unknown]
  - Oesophageal candidiasis [Unknown]

NARRATIVE: CASE EVENT DATE: 201706
